FAERS Safety Report 4811141-9 (Version None)
Quarter: 2005Q4

REPORT INFORMATION
  Report Type: 
  Country: None (occurrence: None)
  Receive Date: 20051027
  Receipt Date: 20051020
  Transmission Date: 20060501
  Serious: Yes (Life-Threatening)
  Sender: FDA-Public Use
  Company Number: ES-GLAXOSMITHKLINE-B0397988A

PATIENT
  Age: 29 Year
  Sex: Male

DRUGS (1)
  1. AUGMENTIN '125' [Suspect]
     Indication: DRUG USE FOR UNKNOWN INDICATION
     Dosage: 875MG THREE TIMES PER DAY
     Route: 048
     Dates: start: 20050420, end: 20050425

REACTIONS (1)
  - HYPOKALAEMIA [None]
